FAERS Safety Report 23513790 (Version 1)
Quarter: 2024Q1

REPORT INFORMATION
  Report Type: Spontaneous
  Country: NL (occurrence: NL)
  Receive Date: 20240212
  Receipt Date: 20240212
  Transmission Date: 20240410
  Serious: Yes (Death)
  Sender: FDA-Public Use
  Company Number: None

PATIENT
  Age: 21 Year
  Sex: Male
  Weight: 78 kg

DRUGS (3)
  1. FLUOXETINE [Suspect]
     Active Substance: FLUOXETINE HYDROCHLORIDE
     Indication: Depressed mood
     Dosage: 20 MILLIGRAM, QD (1X PER DAY)
     Route: 065
     Dates: start: 20230613
  2. SEROQUEL [Suspect]
     Active Substance: QUETIAPINE FUMARATE
     Indication: Sleep disorder
     Dosage: 25 MILLIGRAM, QD (1XPER DAY)
     Route: 065
     Dates: start: 20230530
  3. SEROQUEL [Suspect]
     Active Substance: QUETIAPINE FUMARATE
     Indication: Restlessness

REACTIONS (5)
  - Mania [Fatal]
  - Condition aggravated [Fatal]
  - Mood swings [Fatal]
  - Hypomania [Fatal]
  - Completed suicide [Fatal]

NARRATIVE: CASE EVENT DATE: 20230827
